FAERS Safety Report 6728313-9 (Version None)
Quarter: 2010Q2

REPORT INFORMATION
  Report Type: 
  Country: None (occurrence: None)
  Receive Date: 20100512
  Receipt Date: 20100430
  Transmission Date: 20101027
  Serious: No
  Sender: FDA-Public Use
  Company Number: 7000721

PATIENT
  Age: 53 Year
  Sex: Female
  Weight: 140 kg

DRUGS (3)
  1. REBIF [Suspect]
     Indication: MULTIPLE SCLEROSIS
     Dosage: 44 MCG, 3 IN 1 WK, SUBCUTANEUS
     Route: 058
     Dates: start: 20090427
  2. LANTUS [Concomitant]
  3. METFORMIN HCL [Concomitant]

REACTIONS (8)
  - BALANCE DISORDER [None]
  - CHEST DISCOMFORT [None]
  - FALL [None]
  - FATIGUE [None]
  - INJECTION SITE DISCOLOURATION [None]
  - PRURITUS [None]
  - STRESS [None]
  - VITAMIN D DECREASED [None]
